FAERS Safety Report 16567433 (Version 1)
Quarter: 2019Q3

REPORT INFORMATION
  Report Type: Spontaneous
  Country: US (occurrence: US)
  Receive Date: 20190712
  Receipt Date: 20190712
  Transmission Date: 20191004
  Serious: Yes (Other)
  Sender: FDA-Public Use
  Company Number: US-IGSA-SR10008709

PATIENT
  Age: 42 Year
  Sex: Male

DRUGS (10)
  1. GAMUNEX-C [Suspect]
     Active Substance: HUMAN IMMUNOGLOBULIN G
     Indication: IMMUNODEFICIENCY COMMON VARIABLE
     Dosage: UNK
     Route: 042
     Dates: start: 20190701, end: 20190701
  2. GAMUNEX-C [Suspect]
     Active Substance: HUMAN IMMUNOGLOBULIN G
     Dosage: UNK
     Route: 042
     Dates: start: 20190701, end: 20190701
  3. RANITIDINE. [Concomitant]
     Active Substance: RANITIDINE
     Indication: PREMEDICATION
     Dosage: 50 MG, UNK
     Route: 042
     Dates: start: 20190701, end: 20190701
  4. GAMUNEX-C [Suspect]
     Active Substance: HUMAN IMMUNOGLOBULIN G
     Dosage: 50 MG, Q.M.T.
     Route: 042
     Dates: start: 2006
  5. I.V. SOLUTIONS [Concomitant]
     Active Substance: UNSPECIFIED INGREDIENT
     Dosage: 500 ML, UNK
     Route: 042
     Dates: start: 20190701, end: 20190701
  6. BENADRYL [Concomitant]
     Active Substance: DIPHENHYDRAMINE HYDROCHLORIDE
     Indication: PREMEDICATION
     Dosage: 50 MG, UNK
     Route: 048
     Dates: start: 20190701, end: 20190701
  7. METHYLPREDNISOLONE. [Concomitant]
     Active Substance: METHYLPREDNISOLONE
     Indication: PREMEDICATION
     Dosage: 125 MG, UNK
     Route: 042
     Dates: start: 20190701, end: 20190701
  8. GAMUNEX-C [Suspect]
     Active Substance: HUMAN IMMUNOGLOBULIN G
     Dosage: 50 G, Q.M.T.
     Route: 042
     Dates: start: 20190701, end: 20190701
  9. TYLENOL [Concomitant]
     Active Substance: ACETAMINOPHEN
     Indication: PREMEDICATION
     Dosage: 650 MG, UNK
     Route: 048
     Dates: start: 20190701, end: 20190701
  10. I.V. SOLUTIONS [Concomitant]
     Active Substance: UNSPECIFIED INGREDIENT
     Indication: PREMEDICATION
     Dosage: 500 ML, UNK
     Route: 042
     Dates: start: 20190701, end: 20190701

REACTIONS (7)
  - Chest discomfort [Recovered/Resolved]
  - Throat tightness [Recovered/Resolved]
  - Dysphonia [Recovered/Resolved]
  - Dyspnoea [Recovered/Resolved]
  - Hyperhidrosis [Recovered/Resolved]
  - Tachycardia [Recovered/Resolved]
  - Cough [Recovered/Resolved]

NARRATIVE: CASE EVENT DATE: 20190701
